FAERS Safety Report 5011231-4 (Version None)
Quarter: 2006Q2

REPORT INFORMATION
  Report Type: 
  Country: None (occurrence: None)
  Receive Date: 20060523
  Receipt Date: 20060523
  Transmission Date: 20061013
  Serious: No
  Sender: FDA-Public Use
  Company Number: None

PATIENT
  Age: 50 Year
  Sex: Female

DRUGS (1)
  1. DILAUDID [Suspect]
     Indication: PAIN
     Dosage: IVP
     Route: 040
     Dates: start: 20060214

REACTIONS (18)
  - ATRIOVENTRICULAR BLOCK FIRST DEGREE [None]
  - BLOOD PRESSURE DECREASED [None]
  - BRAIN NATRIURETIC PEPTIDE INCREASED [None]
  - CARDIO-RESPIRATORY ARREST [None]
  - DRUG HYPERSENSITIVITY [None]
  - FAECAL INCONTINENCE [None]
  - FALL [None]
  - HAEMODIALYSIS [None]
  - HEART RATE DECREASED [None]
  - HYPERHIDROSIS [None]
  - RESPIRATORY DISTRESS [None]
  - SEDATION [None]
  - SLEEP APNOEA SYNDROME [None]
  - SOMNOLENCE [None]
  - SPEECH DISORDER [None]
  - SURGICAL PROCEDURE REPEATED [None]
  - URINARY INCONTINENCE [None]
  - YAWNING [None]
